FAERS Safety Report 15209484 (Version 1)
Quarter: 2018Q3

REPORT INFORMATION
  Report Type: Spontaneous
  Country: US (occurrence: US)
  Receive Date: 20180629
  Receipt Date: 20180629
  Transmission Date: 20181010
  Serious: Yes (Hospitalization)
  Sender: FDA-Public Use
  Company Number: None

PATIENT
  Age: 74 Year
  Sex: Male
  Weight: 66.7 kg

DRUGS (1)
  1. PAZOPANIB [Suspect]
     Active Substance: PAZOPANIB
     Dates: end: 20180621

REACTIONS (7)
  - Weight decreased [None]
  - Renal impairment [None]
  - Diarrhoea [None]
  - Decreased appetite [None]
  - Blood creatinine increased [None]
  - Vomiting [None]
  - Intestinal obstruction [None]

NARRATIVE: CASE EVENT DATE: 20180625
